FAERS Safety Report 19024089 (Version 1)
Quarter: 2021Q1

REPORT INFORMATION
  Report Type: Spontaneous
  Country: US (occurrence: US)
  Receive Date: 20210317
  Receipt Date: 20210317
  Transmission Date: 20210420
  Serious: Yes (Hospitalization, Other)
  Sender: FDA-Public Use
  Company Number: US-ANIPHARMA-2021-US-004214

PATIENT
  Age: 69 Year
  Sex: Female

DRUGS (4)
  1. ASPIRIN. [Concomitant]
     Active Substance: ASPIRIN
  2. LISINOPRIL. [Concomitant]
     Active Substance: LISINOPRIL
  3. SIMVASTATIN. [Concomitant]
     Active Substance: SIMVASTATIN
  4. MORPHINE SULFATE ORAL SOLUTION (NON?SPECIFIC) [Suspect]
     Active Substance: MORPHINE SULFATE
     Indication: OSTEOARTHRITIS

REACTIONS (2)
  - Stress cardiomyopathy [Recovered/Resolved]
  - Drug withdrawal syndrome [Recovered/Resolved]
